FAERS Safety Report 8577310-X (Version None)
Quarter: 2012Q3

REPORT INFORMATION
  Report Type: 
  Country: None (occurrence: None)
  Receive Date: 20120807
  Receipt Date: 20120727
  Transmission Date: 20120928
  Serious: Yes (Hospitalization)
  Sender: FDA-Public Use
  Company Number: TR-ELI_LILLY_AND_COMPANY-TR201207009382

PATIENT
  Sex: Female

DRUGS (3)
  1. HUMALOG [Suspect]
     Indication: DIABETES MELLITUS
     Dosage: UNK UNK, UNKNOWN
     Dates: start: 20120727
  2. HUMULIN N [Suspect]
     Indication: DIABETES MELLITUS
     Dosage: UNK UNK, UNKNOWN
     Dates: start: 20120727
  3. LANTUS [Concomitant]

REACTIONS (2)
  - HOSPITALISATION [None]
  - MATERNAL EXPOSURE DURING PREGNANCY [None]
